FAERS Safety Report 22590543 (Version 1)
Quarter: 2023Q2

REPORT INFORMATION
  Report Type: Spontaneous
  Country: US (occurrence: US)
  Receive Date: 20230612
  Receipt Date: 20230612
  Transmission Date: 20230722
  Serious: No
  Sender: FDA-Public Use
  Company Number: US-TAKEDA-2023TUS057345

PATIENT
  Sex: Male

DRUGS (4)
  1. GATTEX [Suspect]
     Active Substance: TEDUGLUTIDE\WATER
     Indication: Product used for unknown indication
     Dosage: UNK UNK, QD
     Route: 058
  2. GATTEX [Suspect]
     Active Substance: TEDUGLUTIDE\WATER
     Indication: Product used for unknown indication
     Dosage: UNK UNK, QD
     Route: 058
  3. GATTEX [Suspect]
     Active Substance: TEDUGLUTIDE\WATER
     Indication: Product used for unknown indication
     Dosage: UNK UNK, QD
     Route: 058
  4. GATTEX [Suspect]
     Active Substance: TEDUGLUTIDE\WATER
     Indication: Product used for unknown indication
     Dosage: UNK UNK, QD
     Route: 058

REACTIONS (3)
  - Gastrointestinal stoma output decreased [Unknown]
  - Nausea [Unknown]
  - Vomiting [Unknown]
